FAERS Safety Report 6184330-1 (Version None)
Quarter: 2009Q2

REPORT INFORMATION
  Report Type: 
  Country: None (occurrence: None)
  Receive Date: 20090508
  Receipt Date: 20090430
  Transmission Date: 20091009
  Serious: Yes (Hospitalization)
  Sender: FDA-Public Use
  Company Number: US-WATSON-2009-03067

PATIENT
  Sex: Female
  Weight: 94.785 kg

DRUGS (1)
  1. FERRLECIT [Suspect]
     Indication: IRON DEFICIENCY ANAEMIA
     Dosage: 250 MG/250 ML IVPB SCHEDUED FOR 3 TIMES A WEEK
     Route: 042
     Dates: start: 20090423, end: 20090423

REACTIONS (7)
  - CHEST DISCOMFORT [None]
  - CHILLS [None]
  - FOETAL HYPOKINESIA [None]
  - HYPOAESTHESIA [None]
  - PAIN IN EXTREMITY [None]
  - PARAESTHESIA [None]
  - RASH [None]
